FAERS Safety Report 19990492 (Version 1)
Quarter: 2021Q4

REPORT INFORMATION
  Report Type: Spontaneous
  Country: GB (occurrence: GB)
  Receive Date: 20211025
  Receipt Date: 20211025
  Transmission Date: 20220303
  Serious: Yes (Disabling, Other)
  Sender: FDA-Public Use
  Company Number: None

PATIENT
  Age: 40 Year
  Sex: Female
  Weight: 44 kg

DRUGS (9)
  1. DUPIXENT [Suspect]
     Active Substance: DUPILUMAB
     Indication: Ill-defined disorder
     Dosage: 300 MG
     Route: 051
     Dates: start: 20210108, end: 20210212
  2. DUPIXENT [Suspect]
     Active Substance: DUPILUMAB
     Indication: Eczema
  3. DUPIXENT [Suspect]
     Active Substance: DUPILUMAB
     Indication: Primary immunodeficiency syndrome
  4. BETNOVATE [Concomitant]
     Active Substance: BETAMETHASONE
     Indication: Ill-defined disorder
  5. DIPROBASE [PARAFFIN, LIQUID;WHITE SOFT PARAFFIN] [Concomitant]
     Indication: Ill-defined disorder
  6. CHLORPHENIRAMINE MALEATE [Concomitant]
     Active Substance: CHLORPHENIRAMINE MALEATE
     Indication: Ill-defined disorder
  7. SEREVENT DISKUS [Concomitant]
     Active Substance: SALMETEROL XINAFOATE
     Indication: Ill-defined disorder
  8. SINGULAIR [Concomitant]
     Active Substance: MONTELUKAST SODIUM
     Indication: Ill-defined disorder
  9. VENTOLIN [Concomitant]
     Active Substance: ALBUTEROL SULFATE
     Indication: Ill-defined disorder

REACTIONS (16)
  - Dizziness [Recovered/Resolved with Sequelae]
  - Presyncope [Recovered/Resolved with Sequelae]
  - Palpitations [Recovered/Resolved]
  - Photophobia [Not Recovered/Not Resolved]
  - Rhinorrhoea [Recovered/Resolved with Sequelae]
  - Confusional state [Recovered/Resolved with Sequelae]
  - Rhinophyma [Unknown]
  - Paraesthesia [Not Recovered/Not Resolved]
  - Nasal oedema [Recovered/Resolved]
  - Aphasia [Not Recovered/Not Resolved]
  - Lacrimation increased [Unknown]
  - Seasonal allergy [Unknown]
  - Head discomfort [Recovered/Resolved with Sequelae]
  - Hypoaesthesia [Unknown]
  - Injection site haemorrhage [Unknown]
  - Product use in unapproved indication [Unknown]

NARRATIVE: CASE EVENT DATE: 20210112
